FAERS Safety Report 20693564 (Version 3)
Quarter: 2023Q4

REPORT INFORMATION
  Report Type: Report from Study
  Country: BR (occurrence: BR)
  Receive Date: 20220411
  Receipt Date: 20231016
  Transmission Date: 20240110
  Serious: Yes (Other)
  Sender: FDA-Public Use
  Company Number: BR-TAKEDA-2020TUS045103

PATIENT
  Age: 16 Year
  Sex: Male
  Weight: 45 kg

DRUGS (13)
  1. IDURSULFASE [Suspect]
     Active Substance: IDURSULFASE
     Indication: Mucopolysaccharidosis II
     Dosage: 3 DOSAGE FORM
     Route: 065
  2. IDURSULFASE [Suspect]
     Active Substance: IDURSULFASE
     Dosage: 4 DOSAGE FORM
     Route: 042
  3. IDURSULFASE [Suspect]
     Active Substance: IDURSULFASE
     Dosage: 5 DOSAGE FORM, 1/WEEK
     Route: 042
     Dates: start: 20230915
  4. IDURSULFASE [Suspect]
     Active Substance: IDURSULFASE
     Dosage: 4 DOSAGE FORM, 1/WEEK
     Route: 042
     Dates: start: 2010
  5. IDURSULFASE [Suspect]
     Active Substance: IDURSULFASE
     Dosage: 5 DOSAGE FORM, 1/WEEK
     Route: 042
     Dates: start: 20230915
  6. IDURSULFASE [Suspect]
     Active Substance: IDURSULFASE
     Dosage: UNK
     Route: 042
  7. CARBAMAZEPINE [Concomitant]
     Active Substance: CARBAMAZEPINE
     Dosage: UNK
     Route: 065
  8. GABAPENTIN [Concomitant]
     Active Substance: GABAPENTIN
     Dosage: UNK
     Route: 065
  9. RISPERIDONE [Concomitant]
     Active Substance: RISPERIDONE
     Dosage: UNK
     Route: 065
  10. AZITHROMYCIN [Concomitant]
     Active Substance: AZITHROMYCIN
     Dosage: UNK
     Route: 065
  11. CYCLOBENZAPRINE [Concomitant]
     Active Substance: CYCLOBENZAPRINE
     Dosage: UNK
     Route: 065
  12. CARVEDILOL [Concomitant]
     Active Substance: CARVEDILOL
     Dosage: UNK
     Route: 065
  13. MELATONIN [Concomitant]
     Active Substance: MELATONIN
     Dosage: UNK
     Route: 065

REACTIONS (5)
  - COVID-19 [Recovered/Resolved]
  - Influenza [Not Recovered/Not Resolved]
  - Off label use [Unknown]
  - Dose calculation error [Unknown]
  - Inappropriate schedule of product administration [Unknown]

NARRATIVE: CASE EVENT DATE: 20220301
